FAERS Safety Report 17003181 (Version 1)
Quarter: 2019Q4

REPORT INFORMATION
  Report Type: Spontaneous
  Country: US (occurrence: US)
  Receive Date: 20191107
  Receipt Date: 20191107
  Transmission Date: 20200122
  Serious: No
  Sender: FDA-Public Use
  Company Number: US-CELGENEUS-USA-20191000368

PATIENT
  Age: 4 Year
  Sex: Male
  Weight: 14 kg

DRUGS (14)
  1. THALOMID [Suspect]
     Active Substance: THALIDOMIDE
     Indication: MEDULLOBLASTOMA RECURRENT
     Dosage: 50 MILLIGRAM
     Route: 048
     Dates: start: 20190805
  2. MUPIROCIN. [Concomitant]
     Active Substance: MUPIROCIN
     Indication: PRODUCT USED FOR UNKNOWN INDICATION
     Dosage: 4 PERCENT
     Route: 061
     Dates: start: 201909
  3. HYDROCO/APAP [Concomitant]
     Active Substance: ACETAMINOPHEN\HYDROCODONE
     Indication: PRODUCT USED FOR UNKNOWN INDICATION
     Dosage: 3.3 MILLILITER EVERY 4 HOUR AS NEEDED
     Route: 048
     Dates: start: 201907
  4. THALOMID [Suspect]
     Active Substance: THALIDOMIDE
     Indication: OFF LABEL USE
  5. ETOPOSIDE. [Concomitant]
     Active Substance: ETOPOSIDE
     Indication: MEDULLOBLASTOMA RECURRENT
     Dosage: 50 MILLIGRAM
     Route: 065
     Dates: start: 20190805
  6. THALOMID [Suspect]
     Active Substance: THALIDOMIDE
     Indication: PRODUCT USE ISSUE
  7. SULFATRIM PD [Concomitant]
     Indication: PRODUCT USED FOR UNKNOWN INDICATION
     Dosage: 12.5 ML ON SATURDAY AND SUNDAY
     Route: 048
     Dates: start: 201902
  8. VINCRISTINE [Concomitant]
     Active Substance: VINCRISTINE
     Indication: MEDULLOBLASTOMA RECURRENT
     Route: 065
  9. THALOMID [Suspect]
     Active Substance: THALIDOMIDE
     Indication: BRAIN NEOPLASM MALIGNANT
  10. SSD [Concomitant]
     Active Substance: SILVER SULFADIAZINE
     Indication: PRODUCT USED FOR UNKNOWN INDICATION
     Dosage: 3 PERCENT
     Route: 061
     Dates: start: 201906
  11. CELECOXIB. [Concomitant]
     Active Substance: CELECOXIB
     Indication: MEDULLOBLASTOMA RECURRENT
     Dosage: 200 MILLIGRAM
     Route: 065
     Dates: start: 20190805
  12. FENOFIBRATE. [Concomitant]
     Active Substance: FENOFIBRATE
     Indication: MEDULLOBLASTOMA RECURRENT
     Dosage: 67 MILLIGRAM
     Route: 065
     Dates: start: 20190805
  13. CYCLOPHOSPHAMIDE. [Concomitant]
     Active Substance: CYCLOPHOSPHAMIDE
     Indication: MEDULLOBLASTOMA RECURRENT
     Dosage: 25 MILLIGRAM
     Route: 065
     Dates: start: 20190826
  14. RANITIDINE. [Concomitant]
     Active Substance: RANITIDINE
     Indication: PRODUCT USED FOR UNKNOWN INDICATION
     Dosage: 6 MILLILITER
     Route: 048
     Dates: start: 201904

REACTIONS (3)
  - Neuropathy peripheral [Recovered/Resolved]
  - Tremor [Recovering/Resolving]
  - Gait disturbance [Unknown]

NARRATIVE: CASE EVENT DATE: 2019
